FAERS Safety Report 8989831 (Version 4)
Quarter: 2013Q2

REPORT INFORMATION
  Report Type: Spontaneous
  Country: SE (occurrence: SE)
  Receive Date: 20121228
  Receipt Date: 20130422
  Transmission Date: 20140414
  Serious: Yes (Hospitalization, Other)
  Sender: FDA-Public Use
  Company Number: SE-VERTEX PHARMACEUTICALS INC.-2012-026701

PATIENT
  Age: 50 Year
  Sex: Female

DRUGS (8)
  1. INCIVO [Suspect]
     Indication: HEPATITIS C
     Dosage: DOSAGE FORM: TABLET
     Route: 065
     Dates: start: 201211
  2. PEG-INTERFERON [Suspect]
     Indication: HEPATITIS C
     Dosage: DOSAGE FORM: UNKNOWN
     Route: 065
     Dates: start: 201211
  3. PEG-INTERFERON [Suspect]
     Dosage: DOSAGE FORM: UNKNOWN
     Route: 065
  4. RIBAVIRIN [Suspect]
     Indication: HEPATITIS C
     Dosage: DOSAGE FORM: UNKNOWN
     Route: 065
     Dates: start: 201211
  5. KIVEXA [Concomitant]
     Indication: HIV INFECTION
  6. RITONAVIR [Concomitant]
     Indication: HIV INFECTION
  7. REYATAZ [Concomitant]
     Indication: HIV INFECTION
  8. CIPRAMIL [Concomitant]

REACTIONS (13)
  - Renal failure acute [Unknown]
  - Psychotic disorder [Unknown]
  - Viraemia [Unknown]
  - Suspiciousness [Unknown]
  - Confusional state [Unknown]
  - Ascites [Unknown]
  - Blood creatinine increased [Recovered/Resolved]
  - Hyperuricaemia [None]
  - Hypokalaemia [Not Recovered/Not Resolved]
  - Off label use [Unknown]
  - Therapeutic response decreased [Unknown]
  - Local swelling [Unknown]
  - Haemoglobin decreased [Unknown]
